FAERS Safety Report 7051062-7 (Version None)
Quarter: 2010Q4

REPORT INFORMATION
  Report Type: 
  Country: None (occurrence: None)
  Receive Date: 20101019
  Receipt Date: 20100923
  Transmission Date: 20110411
  Serious: Yes (Other)
  Sender: FDA-Public Use
  Company Number: US-BAYER-201014073NA

PATIENT
  Age: 16 Year
  Sex: Female
  Weight: 88 kg

DRUGS (3)
  1. YAZ [Suspect]
     Indication: PRODUCT USED FOR UNKNOWN INDICATION
     Route: 048
  2. YASMIN [Suspect]
     Indication: PRODUCT USED FOR UNKNOWN INDICATION
     Route: 048
     Dates: start: 20020509, end: 20050425
  3. SEASONALE [Concomitant]

REACTIONS (3)
  - ABDOMINAL PAIN [None]
  - CHOLECYSTECTOMY [None]
  - GASTROINTESTINAL DISORDER [None]
